FAERS Safety Report 9188541 (Version 1)
Quarter: 2013Q1

REPORT INFORMATION
  Report Type: Spontaneous
  Country: TR (occurrence: TR)
  Receive Date: 20130325
  Receipt Date: 20130325
  Transmission Date: 20140127
  Serious: Yes (Hospitalization, Congenital Anomaly)
  Sender: FDA-Public Use
  Company Number: PHHY2012TR049807

PATIENT
  Age: 75 Year
  Sex: Female

DRUGS (2)
  1. GALANTAMINE [Suspect]
     Indication: DEMENTIA ALZHEIMER^S TYPE
  2. ATENOLOL [Concomitant]
     Dosage: 5 MG, DAILY

REACTIONS (7)
  - Ebstein^s anomaly [Recovered/Resolved]
  - Atrioventricular block complete [Recovered/Resolved]
  - Bradyarrhythmia [Recovered/Resolved]
  - Syncope [Recovered/Resolved]
  - Tricuspid valve incompetence [Recovered/Resolved]
  - Ejection fraction decreased [Recovered/Resolved]
  - Dizziness [Recovered/Resolved]
